FAERS Safety Report 4504917-9 (Version None)
Quarter: 2004Q4

REPORT INFORMATION
  Report Type: 
  Country: None (occurrence: None)
  Receive Date: 20040928
  Receipt Date: 20040803
  Transmission Date: 20050328
  Serious: No
  Sender: FDA-Public Use
  Company Number: 04P-163-0269102-00

PATIENT
  Age: 52 Year
  Sex: Female

DRUGS (2)
  1. HUMIRA [Suspect]
     Dosage: 40 MG, 1 IN 1 WK
     Dates: start: 20040602
  2. FLUOXETINE HYDROCHLORIDE [Concomitant]

REACTIONS (2)
  - ERYTHEMA [None]
  - SWELLING [None]
